FAERS Safety Report 4802983-4 (Version None)
Quarter: 2005Q4

REPORT INFORMATION
  Report Type: 
  Country: None (occurrence: None)
  Receive Date: 20051013
  Receipt Date: 20050927
  Transmission Date: 20060501
  Serious: Yes (Death)
  Sender: FDA-Public Use
  Company Number: JP_050907703

PATIENT
  Age: 82 Year
  Sex: Male

DRUGS (2)
  1. GEMZAR [Suspect]
     Indication: LUNG NEOPLASM MALIGNANT
     Dates: start: 20050830
  2. CARBOPLATIN [Concomitant]

REACTIONS (2)
  - HYPERPHAGIA [None]
  - STOMACH DISCOMFORT [None]
